FAERS Safety Report 7964202-X (Version None)
Quarter: 2011Q4

REPORT INFORMATION
  Report Type: 
  Country: None (occurrence: None)
  Receive Date: 20111208
  Receipt Date: 20111129
  Transmission Date: 20120403
  Serious: Yes (Other)
  Sender: FDA-Public Use
  Company Number: US-US-EMD SERONO, INC.-7099031

PATIENT
  Sex: Female

DRUGS (2)
  1. REBIF [Suspect]
     Indication: MULTIPLE SCLEROSIS
     Route: 058
     Dates: start: 20100205
  2. LANTUS [Concomitant]
     Indication: DIABETES MELLITUS

REACTIONS (5)
  - NEPHROLITHIASIS [None]
  - BLADDER SPASM [None]
  - GAIT DISTURBANCE [None]
  - ASTHENIA [None]
  - SKIN DISCOLOURATION [None]
